FAERS Safety Report 9383164 (Version 1)
Quarter: 2013Q3

REPORT INFORMATION
  Report Type: Spontaneous
  Country: US (occurrence: US)
  Receive Date: 20130704
  Receipt Date: 20130704
  Transmission Date: 20140515
  Serious: Yes (Hospitalization)
  Sender: FDA-Public Use
  Company Number: US-BRISTOL-MYERS SQUIBB COMPANY-19065069

PATIENT
  Age: 62 Year
  Sex: Female
  Weight: 70.29 kg

DRUGS (4)
  1. COUMADIN [Suspect]
     Dosage: WARFARIN SODIUM 5 MG, 1.5 TABLETS ON SUNDAYS AND THURSDAYS AND 1 TABLET THE OTHER DAYS OF THE WEEK
  2. METFORMIN [Concomitant]
  3. METOPROLOL [Concomitant]
  4. LISINOPRIL [Concomitant]

REACTIONS (2)
  - Gastric haemorrhage [Unknown]
  - Gastric ulcer [Unknown]
